FAERS Safety Report 25897297 (Version 1)
Quarter: 2025Q4

REPORT INFORMATION
  Report Type: Spontaneous
  Country: US (occurrence: US)
  Receive Date: 20251008
  Receipt Date: 20251008
  Transmission Date: 20260118
  Serious: Yes (Other)
  Sender: NOVO NORDISK
  Company Number: US-NOVOPROD-1531375

PATIENT
  Age: 85 Year
  Sex: Female

DRUGS (3)
  1. TRESIBA [Suspect]
     Active Substance: INSULIN DEGLUDEC
     Indication: Type 2 diabetes mellitus
     Dosage: 20 IU, QD
     Dates: start: 2025, end: 2025
  2. NOVOLOG [Suspect]
     Active Substance: INSULIN ASPART
     Indication: Type 2 diabetes mellitus
     Dosage: UNK
  3. LINAPRIDE D [Concomitant]
     Indication: Type 2 diabetes mellitus
     Dosage: 4 MG, QD
     Route: 048
     Dates: start: 20250814

REACTIONS (4)
  - Deafness [Unknown]
  - Swelling face [Unknown]
  - Diarrhoea [Recovered/Resolved]
  - Blood glucose increased [Unknown]

NARRATIVE: CASE EVENT DATE: 20250101
